FAERS Safety Report 12753144 (Version 1)
Quarter: 2016Q3

REPORT INFORMATION
  Report Type: Spontaneous
  Country: US (occurrence: US)
  Receive Date: 20160915
  Receipt Date: 20160915
  Transmission Date: 20161109
  Serious: No
  Sender: FDA-Public Use
  Company Number: US-PFIZER INC-2016429498

PATIENT
  Sex: Male

DRUGS (2)
  1. CHAPSTICK CLASSIC ORIGINAL [Suspect]
     Active Substance: PETROLATUM
     Dosage: UNK
  2. ADVIL PM [Suspect]
     Active Substance: DIPHENHYDRAMINE CITRATE\IBUPROFEN
     Dosage: UNK

REACTIONS (7)
  - Emphysema [Unknown]
  - Intentional product misuse [Unknown]
  - Tremor [Unknown]
  - Back disorder [Unknown]
  - Pain in extremity [Unknown]
  - Bronchitis chronic [Unknown]
  - Gingival disorder [Unknown]
